FAERS Safety Report 13972174 (Version 2)
Quarter: 2017Q3

REPORT INFORMATION
  Report Type: Spontaneous
  Country: US (occurrence: US)
  Receive Date: 20170914
  Receipt Date: 20170920
  Transmission Date: 20171128
  Serious: Yes (Hospitalization, Other)
  Sender: FDA-Public Use
  Company Number: US-ASTRAZENECA-2017SE93996

PATIENT
  Age: 23247 Day
  Sex: Female
  Weight: 71.6 kg

DRUGS (24)
  1. SEROQUEL XR [Suspect]
     Active Substance: QUETIAPINE FUMARATE
     Route: 048
  2. BISACODYL. [Concomitant]
     Active Substance: BISACODYL
     Dosage: 5 MG BY MOUTH EVERY NIGHT AT BEDTIME AND PRN
     Route: 048
  3. TYLENOL [Concomitant]
     Active Substance: ACETAMINOPHEN
     Dosage: 650 MG BY MOUTH EVERY 4 HOURS AS NEEDED
     Route: 048
  4. BREWERS YEAST [Concomitant]
     Active Substance: SACCHAROMYCES CEREVISIAE
     Route: 048
  5. FISH OIL [Concomitant]
     Active Substance: FISH OIL
     Route: 048
  6. PLAVIX [Concomitant]
     Active Substance: CLOPIDOGREL BISULFATE
  7. VITAMIN B COMPLEX [Concomitant]
     Active Substance: CYANOCOBALAMIN\DEXPANTHENOL\NIACINAMIDE\PYRIDOXINE HYDROCHLORIDE\RIBOFLAVIN 5^-PHOSPHATE SODIUM\THIAMINE HYDROCHLORIDE\VITAMIN B COMPLEX
     Route: 048
  8. SODIUM CHLORIDE. [Concomitant]
     Active Substance: SODIUM CHLORIDE
     Dosage: PLACE 1 DROP INTO BOTLL EYES 1 TIME PER DAY
  9. LORAZEPAM. [Concomitant]
     Active Substance: LORAZEPAM
  10. HYDROCODONE [Concomitant]
     Active Substance: HYDROCODONE
     Indication: MOOD ALTERED
  11. ANASTROZOLE. [Suspect]
     Active Substance: ANASTROZOLE
     Route: 048
     Dates: start: 201208
  12. TURMERIC [Concomitant]
     Active Substance: HERBALS\TURMERIC
     Route: 048
  13. COLACE [Concomitant]
     Active Substance: DOCUSATE SODIUM
     Route: 048
  14. IBRANCE [Suspect]
     Active Substance: PALBOCICLIB
     Indication: BREAST CANCER METASTATIC
     Route: 048
     Dates: start: 20160413
  15. IBRANCE [Suspect]
     Active Substance: PALBOCICLIB
     Indication: BREAST CANCER METASTATIC
     Route: 048
  16. MULTIVITAMIN [Concomitant]
     Active Substance: VITAMINS
     Route: 048
  17. LITHIUM CARBONATE. [Concomitant]
     Active Substance: LITHIUM CARBONATE
     Route: 048
  18. FLONASE [Concomitant]
     Active Substance: FLUTICASONE PROPIONATE
     Dosage: 2 SPRAYS INTO EACH NOSTRIL 1 TIME PER DAY
  19. ASPIRIN. [Concomitant]
     Active Substance: ASPIRIN
     Indication: PROPHYLAXIS
  20. CODEINE [Concomitant]
     Active Substance: CODEINE
  21. MECLIZINE [Concomitant]
     Active Substance: MECLIZINE HYDROCHLORIDE
     Indication: DIZZINESS
     Route: 048
  22. VITAMIN D3 [Concomitant]
     Active Substance: CHOLECALCIFEROL
     Dosage: 2,000 UNITS BY MOUTH 1 TIME PER DAY
     Route: 048
  23. FASLODEX [Suspect]
     Active Substance: FULVESTRANT
     Dosage: 500.0MG UNKNOWN
     Route: 030
     Dates: start: 20160316
  24. HYDROCODONE [Concomitant]
     Active Substance: HYDROCODONE
     Indication: CONSTIPATION

REACTIONS (24)
  - Depression [Unknown]
  - Cerebrovascular accident [Unknown]
  - Decreased appetite [Unknown]
  - Fatigue [Unknown]
  - Metastases to spinal cord [Unknown]
  - Large intestinal stenosis [Unknown]
  - Hydrocephalus [Unknown]
  - Sternal fracture [Unknown]
  - Cholelithiasis [Unknown]
  - Meningitis viral [Recovered/Resolved]
  - Immunosuppression [Recovered/Resolved]
  - Metastases to bone [Unknown]
  - Metastases to adrenals [Unknown]
  - Drug hypersensitivity [Unknown]
  - Poor dental condition [Unknown]
  - Metastases to meninges [Unknown]
  - Haemangioma [Unknown]
  - Invasive ductal breast carcinoma [Unknown]
  - Uterine leiomyoma [Unknown]
  - Constipation [Unknown]
  - Cancer pain [Unknown]
  - Coma [Unknown]
  - Metastases to liver [Unknown]
  - Anxiety [Unknown]

NARRATIVE: CASE EVENT DATE: 20140727
